FAERS Safety Report 9221535 (Version 1)
Quarter: 2013Q1

REPORT INFORMATION
  Report Type: Spontaneous
  Country: US (occurrence: None)
  Receive Date: 20120831
  Receipt Date: 20120831
  Transmission Date: 20140127
  Serious: Yes (Other)
  Sender: FDA-Public Use
  Company Number: 1000031044

PATIENT
  Age: 67 Year
  Sex: Female
  Weight: 58.1 kg

DRUGS (6)
  1. DALIRESP [Suspect]
     Indication: CHRONIC OBSTRUCTIVE PULMONARY DISEASE
     Route: 048
     Dates: start: 201204, end: 201204
  2. COREG (CARVEDILOL) (CARVEDILOL) [Concomitant]
  3. LEXAPRO (ESCITALOPRAM OXALATE) (ESCITALOPRAM OXALATE) [Concomitant]
  4. MAGNESIUM (MAGNESIUM) (MAGNESIUM) [Concomitant]
  5. TRAZODONE (TRAZODONE) (TRAZODONE) [Concomitant]
  6. XANAX (ALPRAZOLAM ) (ALPRAZOLAM) [Concomitant]

REACTIONS (5)
  - Weight decreased [None]
  - Diarrhoea [None]
  - Nausea [None]
  - Decreased appetite [None]
  - Muscular weakness [None]
